FAERS Safety Report 6549241-8 (Version None)
Quarter: 2010Q1

REPORT INFORMATION
  Report Type: 
  Country: None (occurrence: None)
  Receive Date: 20100125
  Receipt Date: 20100121
  Transmission Date: 20100710
  Serious: Yes (Life-Threatening)
  Sender: FDA-Public Use
  Company Number: US-ASTRAZENECA-2010SE02735

PATIENT
  Age: 4 Year
  Sex: Male

DRUGS (1)
  1. PROPOFOL [Suspect]
     Indication: STATUS EPILEPTICUS
     Dosage: TITRATED FROM 100 MCG/KG/MIN TO 300 MCG/KG/MIN (18 MG/KG/HR)
     Route: 042

REACTIONS (1)
  - PROPOFOL INFUSION SYNDROME [None]
